FAERS Safety Report 15482785 (Version 2)
Quarter: 2018Q4

REPORT INFORMATION
  Report Type: Spontaneous
  Country: US (occurrence: US)
  Receive Date: 20181010
  Receipt Date: 20181019
  Transmission Date: 20190205
  Serious: Yes (Other)
  Sender: FDA-Public Use
  Company Number: US-SUNOVION-2018SUN003861

PATIENT
  Sex: Female
  Weight: 66 kg

DRUGS (1)
  1. APTIOM [Suspect]
     Active Substance: ESLICARBAZEPINE ACETATE
     Indication: EPILEPSY
     Dosage: 400 MG, BID
     Route: 048

REACTIONS (2)
  - Blood sodium decreased [Unknown]
  - Convulsive threshold lowered [Not Recovered/Not Resolved]
